FAERS Safety Report 8313801-4 (Version None)
Quarter: 2012Q2

REPORT INFORMATION
  Report Type: 
  Country: None (occurrence: None)
  Receive Date: 20120426
  Receipt Date: 20120403
  Transmission Date: 20120825
  Serious: No
  Sender: FDA-Public Use
  Company Number: JP-ASTRAZENECA-2012SE20616

PATIENT
  Age: 28129 Day
  Sex: Male

DRUGS (3)
  1. MEROPENEM [Suspect]
     Indication: MENINGITIS BACTERIAL
     Route: 042
     Dates: start: 20120217, end: 20120227
  2. VANCOMYCIN HYDROCHLORIDE [Concomitant]
     Route: 041
     Dates: start: 20120221
  3. GASLON N [Concomitant]
     Route: 048
     Dates: start: 20120204

REACTIONS (1)
  - DRUG ERUPTION [None]
